FAERS Safety Report 15556733 (Version 2)
Quarter: 2018Q4

REPORT INFORMATION
  Report Type: Spontaneous
  Country: US (occurrence: US)
  Receive Date: 20181026
  Receipt Date: 20181212
  Transmission Date: 20190205
  Serious: Yes (Hospitalization, Other)
  Sender: FDA-Public Use
  Company Number: US-ASTRAZENECA-2018SF39660

PATIENT
  Age: 26561 Day
  Sex: Male

DRUGS (27)
  1. NOVOLOG [Concomitant]
     Active Substance: INSULIN ASPART
     Dosage: 100
     Dates: start: 20140825
  2. LIPITOR [Concomitant]
     Active Substance: ATORVASTATIN CALCIUM
     Dosage: 10MG
     Dates: start: 20160221
  3. LYRICA [Concomitant]
     Active Substance: PREGABALIN
     Dosage: 300MG
     Dates: start: 20131201
  4. GLIPIZIDE. [Concomitant]
     Active Substance: GLIPIZIDE
     Indication: DIABETES MELLITUS
  5. MUPIROCIN. [Concomitant]
     Active Substance: MUPIROCIN
     Indication: ROSACEA
     Dates: start: 20180309
  6. GLYCOLAX [Concomitant]
     Active Substance: POLYETHYLENE GLYCOL 3350
     Dates: start: 20171004
  7. ZANTAC [Concomitant]
     Active Substance: RANITIDINE HYDROCHLORIDE
     Dosage: 300MG
     Dates: start: 20180928
  8. ASPIRIN EC [Concomitant]
     Active Substance: ASPIRIN
     Dosage: 81MG
  9. METRONIDAZOLE. [Concomitant]
     Active Substance: METRONIDAZOLE
     Dates: start: 20161017
  10. RANITIDINE. [Concomitant]
     Active Substance: RANITIDINE
     Indication: GASTROOESOPHAGEAL REFLUX DISEASE
  11. LISINOPRIL. [Suspect]
     Active Substance: LISINOPRIL
     Dosage: 10MG
     Route: 048
     Dates: start: 20160421
  12. LISINOPRIL. [Concomitant]
     Active Substance: LISINOPRIL
  13. METOPROLOL TARTRATE. [Suspect]
     Active Substance: METOPROLOL TARTRATE
     Route: 048
     Dates: start: 20130313
  14. BYDUREON [Suspect]
     Active Substance: EXENATIDE
     Indication: DIABETES MELLITUS
     Route: 058
     Dates: start: 20150213, end: 20181207
  15. TAMSULOSIN [Concomitant]
     Active Substance: TAMSULOSIN
     Indication: PROPHYLAXIS
     Dosage: 0.4 MG
     Dates: start: 20171004
  16. LEVAMIR FLEX TOUCH [Concomitant]
     Dosage: 100
  17. PROTONIX [Concomitant]
     Active Substance: PANTOPRAZOLE SODIUM
     Dosage: 40MG
     Dates: start: 20180308
  18. FISH OIL [Concomitant]
     Active Substance: FISH OIL
     Dosage: 1000MG
  19. METRONIDAZOLE. [Concomitant]
     Active Substance: METRONIDAZOLE
     Indication: ROSACEA
  20. GLIPIZIDE. [Concomitant]
     Active Substance: GLIPIZIDE
     Dosage: 10MG
  21. MUPIROCIN CALCIUM. [Concomitant]
     Active Substance: MUPIROCIN CALCIUM
     Dates: start: 20180309
  22. LUMIGAN [Concomitant]
     Active Substance: BIMATOPROST
  23. INVOKANA [Concomitant]
     Active Substance: CANAGLIFLOZIN
     Dosage: 300MG
     Dates: start: 20150710
  24. IMDUR [Concomitant]
     Active Substance: ISOSORBIDE MONONITRATE
     Dosage: 30MG
     Dates: start: 20160421
  25. NITROGLYCERIN. [Concomitant]
     Active Substance: NITROGLYCERIN
     Dosage: 0.4MG
     Dates: start: 20130313
  26. ASPIRINE [Concomitant]
     Active Substance: ASPIRIN
  27. TAMSULOSIN [Concomitant]
     Active Substance: TAMSULOSIN

REACTIONS (4)
  - Pancreatitis acute [Recovered/Resolved]
  - Renal cyst [Unknown]
  - Pulmonary mass [Unknown]
  - Diverticulum intestinal [Unknown]

NARRATIVE: CASE EVENT DATE: 20180928
